FAERS Safety Report 13418626 (Version 1)
Quarter: 2017Q2

REPORT INFORMATION
  Report Type: Report from Study
  Country: None (occurrence: RO)
  Receive Date: 20170406
  Receipt Date: 20170406
  Transmission Date: 20170830
  Serious: Yes (Death)
  Sender: FDA-Public Use
  Company Number: RO-ABBVIE-17P-135-1932331-00

PATIENT
  Age: 66 Year
  Sex: Male

DRUGS (2)
  1. ISICOM [Concomitant]
     Active Substance: CARBIDOPA\LEVODOPA
     Indication: PARKINSON^S DISEASE
     Dosage: FORM STRENGHT: 250MG/25MG
     Route: 048
  2. DUODOPA [Suspect]
     Active Substance: CARBIDOPA\LEVODOPA
     Indication: PARKINSON^S DISEASE
     Dosage: MD:15 ML, CR:4.8 ML, ED:2.4 ML
     Route: 050
     Dates: start: 20130729, end: 20170402

REACTIONS (1)
  - Death [Fatal]

NARRATIVE: CASE EVENT DATE: 20170402
